FAERS Safety Report 6880633-3 (Version None)
Quarter: 2010Q3

REPORT INFORMATION
  Report Type: 
  Country: None (occurrence: None)
  Receive Date: 20100727
  Receipt Date: 20100312
  Transmission Date: 20110219
  Serious: No
  Sender: FDA-Public Use
  Company Number: A0851185A

PATIENT
  Sex: Male

DRUGS (1)
  1. ZANTAC [Suspect]
     Dosage: 150MG TWICE PER DAY
     Route: 065

REACTIONS (2)
  - DYSPEPSIA [None]
  - GASTROOESOPHAGEAL REFLUX DISEASE [None]
